FAERS Safety Report 18746498 (Version 2)
Quarter: 2021Q1

REPORT INFORMATION
  Report Type: Spontaneous
  Country: US (occurrence: US)
  Receive Date: 20210115
  Receipt Date: 20210115
  Transmission Date: 20210419
  Serious: Yes (Death, Other)
  Sender: FDA-Public Use
  Company Number: US-PFIZER INC-2021010766

PATIENT
  Age: 79 Year
  Sex: Female

DRUGS (7)
  1. DOXIFLURIDINE [Concomitant]
     Active Substance: DOXIFLURIDINE
     Indication: CHEMOTHERAPY
     Dosage: UNK
  2. DOXORUBICIN [DOXORUBICIN HYDROCHLORIDE] [Concomitant]
     Active Substance: DOXORUBICIN HYDROCHLORIDE
     Indication: CHEMOTHERAPY
     Dosage: UNK
  3. CYCLOPHOSPHAMIDE. [Concomitant]
     Active Substance: CYCLOPHOSPHAMIDE
     Indication: INVASIVE DUCTAL BREAST CARCINOMA
     Dosage: UNK
  4. PACLITAXEL. [Suspect]
     Active Substance: PACLITAXEL
     Indication: INVASIVE DUCTAL BREAST CARCINOMA
  5. DOXIFLURIDINE [Concomitant]
     Active Substance: DOXIFLURIDINE
     Indication: INVASIVE DUCTAL BREAST CARCINOMA
  6. DOXORUBICIN [DOXORUBICIN HYDROCHLORIDE] [Concomitant]
     Active Substance: DOXORUBICIN HYDROCHLORIDE
     Indication: INVASIVE DUCTAL BREAST CARCINOMA
  7. PACLITAXEL. [Suspect]
     Active Substance: PACLITAXEL
     Indication: CHEMOTHERAPY
     Dosage: UNK, WEEKLY

REACTIONS (2)
  - Gastrointestinal necrosis [Fatal]
  - Intestinal perforation [Fatal]
